FAERS Safety Report 24453457 (Version 2)
Quarter: 2024Q4

REPORT INFORMATION
  Report Type: Report from Study
  Country: US (occurrence: US)
  Receive Date: 20241017
  Receipt Date: 20241018
  Transmission Date: 20250114
  Serious: No
  Sender: ROCHE
  Company Number: US-ROCHE-3236655

PATIENT
  Age: 62 Year
  Sex: Female

DRUGS (13)
  1. RITUXAN [Suspect]
     Active Substance: RITUXIMAB
     Indication: Systemic lupus erythematosus
     Dosage: 1,000 MG IN SODIUM CHLORIDE 0.9 % 500 ML INFUSION? FREQUENCY TEXT:DAY 1 AND DAY 15
     Route: 041
  2. CELEBREX [Concomitant]
     Active Substance: CELECOXIB
  3. CLOBETASOL [Concomitant]
     Active Substance: CLOBETASOL
  4. PLAQUENIL [Concomitant]
     Active Substance: HYDROXYCHLOROQUINE SULFATE
  5. GABAPENTIN [Concomitant]
     Active Substance: GABAPENTIN
  6. LEVOTHYROXINE [Concomitant]
     Active Substance: LEVOTHYROXINE
  7. MONTELUKAST [Concomitant]
     Active Substance: MONTELUKAST
  8. REVATIO [Concomitant]
     Active Substance: SILDENAFIL CITRATE
  9. TRAZODONE [Concomitant]
     Active Substance: TRAZODONE HYDROCHLORIDE
  10. TRAMADOL [Concomitant]
     Active Substance: TRAMADOL
  11. VALSARTAN [Concomitant]
     Active Substance: VALSARTAN
  12. ZOLPIDEM [Concomitant]
     Active Substance: ZOLPIDEM TARTRATE
  13. VENLAFAXINE [Concomitant]
     Active Substance: VENLAFAXINE HYDROCHLORIDE

REACTIONS (2)
  - Off label use [Unknown]
  - No adverse event [Unknown]
